FAERS Safety Report 7427313-3 (Version None)
Quarter: 2011Q2

REPORT INFORMATION
  Report Type: 
  Country: None (occurrence: None)
  Receive Date: 20110420
  Receipt Date: 20110412
  Transmission Date: 20111010
  Serious: Yes (Hospitalization)
  Sender: FDA-Public Use
  Company Number: US-B.I. PHARMACEUTICALS,INC./RIDGEFIELD-2011-BP-05070BP

PATIENT
  Age: 79 Year
  Sex: Male
  Weight: 85.28 kg

DRUGS (9)
  1. NORVASC [Concomitant]
     Dosage: 5 MG
  2. ADVAIR HFA [Concomitant]
  3. ALLOPURINOL [Concomitant]
     Dosage: 15 MG
  4. ZEMPLAR [Concomitant]
     Dosage: 1 MG
  5. LASIX [Concomitant]
     Dosage: 20 MG
  6. AVODART [Concomitant]
     Dosage: 0.5 MG
  7. PRADAXA [Suspect]
     Indication: ATRIAL FIBRILLATION
     Dosage: 300 MG
     Route: 048
     Dates: start: 20101012, end: 20110219
  8. TOPROL-XL [Concomitant]
     Dosage: 50 MG
  9. ALBUTEROL [Concomitant]

REACTIONS (8)
  - CONSTIPATION [None]
  - ASTHENIA [None]
  - COLONIC POLYP [None]
  - DYSPNOEA EXERTIONAL [None]
  - DIVERTICULUM INTESTINAL HAEMORRHAGIC [None]
  - MELAENA [None]
  - ANXIETY [None]
  - GASTROINTESTINAL HAEMORRHAGE [None]
